FAERS Safety Report 6528042-0 (Version None)
Quarter: 2009Q4

REPORT INFORMATION
  Report Type: 
  Country: None (occurrence: None)
  Receive Date: 20091222
  Receipt Date: 20090915
  Transmission Date: 20100525
  Serious: No
  Sender: FDA-Public Use
  Company Number: ALL1-2009-02727

PATIENT
  Age: 58 Year
  Sex: Female

DRUGS (6)
  1. VYVANSE [Suspect]
     Indication: ATTENTION DEFICIT/HYPERACTIVITY DISORDER
     Dosage: 40 MG, 1X/DAY:QD, ORAL
     Route: 048
     Dates: start: 20090501, end: 20090913
  2. SYNTHROID [Concomitant]
  3. EFFEXOR /01233801/ (VENLAFAXINE) [Concomitant]
  4. TOPAMAX [Concomitant]
  5. PROTONIX [Concomitant]
  6. AMITIZA [Concomitant]

REACTIONS (3)
  - LIP HAEMORRHAGE [None]
  - PHOTOSENSITIVITY REACTION [None]
  - PRODUCT QUALITY ISSUE [None]
